FAERS Safety Report 6991737-9 (Version None)
Quarter: 2010Q3

REPORT INFORMATION
  Report Type: 
  Country: None (occurrence: None)
  Receive Date: 20100917
  Receipt Date: 20100817
  Transmission Date: 20110219
  Serious: No
  Sender: FDA-Public Use
  Company Number: US-PFIZER INC-2010104260

PATIENT
  Sex: Male

DRUGS (2)
  1. NARDIL [Suspect]
     Indication: MAJOR DEPRESSION
     Dosage: UNK
     Route: 048
  2. NARDIL [Suspect]
     Indication: SOCIAL PHOBIA

REACTIONS (1)
  - EYE PAIN [None]
